FAERS Safety Report 22663488 (Version 3)
Quarter: 2023Q4

REPORT INFORMATION
  Report Type: Spontaneous
  Country: JP (occurrence: JP)
  Receive Date: 20230703
  Receipt Date: 20231004
  Transmission Date: 20240110
  Serious: Yes (Death, Hospitalization, Other)
  Sender: FDA-Public Use
  Company Number: JP-KYOWAKIRIN-2022AKK018384

PATIENT
  Age: 53 Year
  Sex: Female

DRUGS (11)
  1. PEGFILGRASTIM [Suspect]
     Active Substance: PEGFILGRASTIM
     Indication: Colony stimulating factor therapy
     Dosage: 3.6 MILLIGRAM, QD
     Route: 058
     Dates: start: 20151205, end: 20151205
  2. PEGFILGRASTIM [Suspect]
     Active Substance: PEGFILGRASTIM
     Dosage: 3.6 MILLIGRAM
     Route: 058
     Dates: start: 20160114, end: 20160114
  3. ETOPOSIDE [Concomitant]
     Active Substance: ETOPOSIDE
     Indication: Leiomyosarcoma
     Dosage: 150 MILLIGRAM, QD
     Route: 042
     Dates: start: 20151201, end: 20151203
  4. CARBOPLATIN [Concomitant]
     Active Substance: CARBOPLATIN
     Indication: Leiomyosarcoma
     Dosage: 220 MILLIGRAM, QD
     Route: 042
     Dates: start: 20151201, end: 20151203
  5. IFOSFAMIDE [Concomitant]
     Active Substance: IFOSFAMIDE
     Indication: Leiomyosarcoma
     Dosage: 3 GRAM, QD
     Route: 042
     Dates: start: 20151201, end: 20151203
  6. MESNA [Concomitant]
     Active Substance: MESNA
     Indication: Prophylaxis
     Dosage: 600 MILLIGRAM, TID
     Route: 042
     Dates: start: 20151201, end: 20151203
  7. EMEND [Concomitant]
     Active Substance: APREPITANT
     Indication: Vomiting
     Dosage: 125 MILLIGRAM, QD
     Route: 048
     Dates: start: 20151201, end: 20151201
  8. EMEND [Concomitant]
     Active Substance: APREPITANT
     Dosage: 80 MILLIGRAM
     Route: 048
     Dates: start: 20151202, end: 20151203
  9. DECADRON [Concomitant]
     Active Substance: DEXAMETHASONE
     Indication: Vomiting
     Dosage: 8 MILLIGRAM
     Route: 042
     Dates: start: 20151201, end: 20151203
  10. MEROPENEM [Concomitant]
     Active Substance: MEROPENEM
     Indication: Product used for unknown indication
     Dosage: UNK
     Route: 065
     Dates: start: 20151215, end: 20151221
  11. GRANISETRON [Concomitant]
     Active Substance: GRANISETRON
     Indication: Vomiting
     Dosage: 3 MILLIGRAM
     Route: 042
     Dates: start: 20151201, end: 20151203

REACTIONS (2)
  - Vasculitis [Recovered/Resolved]
  - Leiomyosarcoma [Fatal]

NARRATIVE: CASE EVENT DATE: 20151215
